FAERS Safety Report 5209483-0 (Version None)
Quarter: 2006Q4

REPORT INFORMATION
  Report Type: 
  Country: None (occurrence: None)
  Receive Date: 20061101
  Receipt Date: 20060614
  Transmission Date: 20070319
  Serious: No
  Sender: FDA-Public Use
  Company Number: 2006PV015646

PATIENT
  Age: 82 Year
  Sex: Male

DRUGS (2)
  1. SYMLIN [Suspect]
     Indication: DIABETES MELLITUS NON-INSULIN-DEPENDENT
     Dosage: QAM;SC
     Route: 058
     Dates: start: 20060613
  2. INSULIN PUMP [Concomitant]

REACTIONS (1)
  - BLOOD GLUCOSE INCREASED [None]
